FAERS Safety Report 5242847-8 (Version None)
Quarter: 2007Q1

REPORT INFORMATION
  Report Type: 
  Country: None (occurrence: None)
  Receive Date: 20070215
  Receipt Date: 20070208
  Transmission Date: 20070707
  Serious: Yes (Other)
  Sender: FDA-Public Use
  Company Number: S07-USA-00475-01

PATIENT
  Age: 30 Year
  Sex: Female

DRUGS (5)
  1. LEXAPRO [Suspect]
     Indication: ANXIETY
     Dosage: 20 MG QD PO
     Route: 048
     Dates: start: 20061101, end: 20070118
  2. LEXAPRO [Suspect]
     Indication: PANIC DISORDER
     Dosage: 20 MG QD PO
     Route: 048
     Dates: start: 20061101, end: 20070118
  3. LEXAPRO [Suspect]
     Indication: ANXIETY
     Dosage: 10 MG QD PO
     Route: 048
     Dates: start: 20061101, end: 20061101
  4. LEXAPRO [Suspect]
     Indication: PANIC DISORDER
     Dosage: 10 MG QD PO
     Route: 048
     Dates: start: 20061101, end: 20061101
  5. LUPRON [Suspect]
     Indication: ENDOMETRIOSIS
     Dates: start: 20040101

REACTIONS (7)
  - AMNESIA [None]
  - CONVULSION [None]
  - DRUG EXPOSURE DURING PREGNANCY [None]
  - GENERAL SYMPTOM [None]
  - LOSS OF CONSCIOUSNESS [None]
  - PREMATURE MENOPAUSE [None]
  - SEROTONIN SYNDROME [None]
